FAERS Safety Report 7943405-4 (Version None)
Quarter: 2011Q4

REPORT INFORMATION
  Report Type: 
  Country: None (occurrence: None)
  Receive Date: 20111128
  Receipt Date: 20111116
  Transmission Date: 20120403
  Serious: Yes (Hospitalization, Other)
  Sender: FDA-Public Use
  Company Number: US-ELI_LILLY_AND_COMPANY-US201103000662

PATIENT
  Sex: Female

DRUGS (1)
  1. FORTEO [Suspect]
     Indication: OSTEOPOROSIS
     Dosage: 20 UG, QD
     Route: 065

REACTIONS (16)
  - PAIN [None]
  - HYPOTENSION [None]
  - CEREBROVASCULAR ACCIDENT [None]
  - HEAD INJURY [None]
  - KIDNEY INFECTION [None]
  - BACK PAIN [None]
  - HEART RATE DECREASED [None]
  - BLOOD GLUCOSE DECREASED [None]
  - CYSTITIS [None]
  - FEELING ABNORMAL [None]
  - DIZZINESS [None]
  - MALAISE [None]
  - FATIGUE [None]
  - FALL [None]
  - WRIST FRACTURE [None]
  - ASTHENIA [None]
